FAERS Safety Report 5328756-4 (Version None)
Quarter: 2007Q2

REPORT INFORMATION
  Report Type: 
  Country: None (occurrence: None)
  Receive Date: 20070518
  Receipt Date: 20070517
  Transmission Date: 20071010
  Serious: Yes (Hospitalization)
  Sender: FDA-Public Use
  Company Number: A0651524A

PATIENT
  Sex: Male

DRUGS (2)
  1. GOODYS EXTRA STRENGTH HEADACHE POWDER [Suspect]
     Indication: HEADACHE
     Dosage: 3Z PER DAY
     Route: 048
  2. NO CONCURRENT MEDICATION [Concomitant]

REACTIONS (6)
  - FAECES DISCOLOURED [None]
  - GASTRIC PERFORATION [None]
  - HAEMORRHAGE [None]
  - INTESTINAL PERFORATION [None]
  - OESOPHAGEAL PERFORATION [None]
  - WEIGHT DECREASED [None]
